FAERS Safety Report 24108137 (Version 1)
Quarter: 2024Q3

REPORT INFORMATION
  Report Type: Spontaneous
  Country: CA (occurrence: CA)
  Receive Date: 20240718
  Receipt Date: 20240718
  Transmission Date: 20241017
  Serious: Yes (Other)
  Sender: CELLTRION
  Company Number: CA-PFIZER INC-202400099650

PATIENT

DRUGS (10)
  1. INFLECTRA [Suspect]
     Active Substance: INFLIXIMAB-DYYB
     Indication: Crohn^s disease
     Dosage: 1 DF, WEEK 0 DOSE, RECEIVED IN HOSPITAL - DOSAGE UNKNOWN
     Route: 042
     Dates: start: 20230202, end: 20230202
  2. INFLECTRA [Suspect]
     Active Substance: INFLIXIMAB-DYYB
     Dosage: 10 MG/KG, WEEK 2 AND 6, THEN EVERY 8 WEEKS
     Route: 042
     Dates: start: 20230221, end: 20230330
  3. INFLECTRA [Suspect]
     Active Substance: INFLIXIMAB-DYYB
     Dosage: 10 MG/KG, ADDITIONAL DOSE, THEN EVERY 4 WEEKS
     Route: 042
     Dates: start: 20230418
  4. INFLECTRA [Suspect]
     Active Substance: INFLIXIMAB-DYYB
     Dosage: 10 MG/KG, ADDITIONAL DOSE, THEN EVERY 4 WEEKS
     Route: 042
     Dates: start: 20240401
  5. INFLECTRA [Suspect]
     Active Substance: INFLIXIMAB-DYYB
     Dosage: 10 MG/KG, ADDITIONAL DOSE, THEN EVERY 4 WEEKS (860 MG, EVERY 4 WEEKS)
     Route: 042
     Dates: start: 20240430
  6. INFLECTRA [Suspect]
     Active Substance: INFLIXIMAB-DYYB
     Dosage: 10 MG/KG, ADDITIONAL DOSE, THEN EVERY 4 WEEKS (860 MG, EVERY 4 WEEKS)
     Route: 042
     Dates: start: 20240430
  7. INFLECTRA [Suspect]
     Active Substance: INFLIXIMAB-DYYB
     Dosage: 10 MG/KG, ADDITIONAL DOSE, THEN EVERY 4 WEEKS (850 MG, EVERY 4 WEEKS)
     Route: 042
     Dates: start: 20240528
  8. INFLECTRA [Suspect]
     Active Substance: INFLIXIMAB-DYYB
     Dosage: 10 MG/KG, ADDITIONAL DOSE, THEN EVERY 4 WEEKS (870 MG, EVERY 4 WEEKS)
     Route: 042
     Dates: start: 20240625
  9. PREDNISONE [Concomitant]
     Active Substance: PREDNISONE
     Dosage: 40 MG
  10. CHOLECALCIFEROL [Concomitant]
     Active Substance: CHOLECALCIFEROL
     Dosage: UNK

REACTIONS (3)
  - Fracture [Unknown]
  - Condition aggravated [Recovered/Resolved]
  - Arthralgia [Unknown]

NARRATIVE: CASE EVENT DATE: 20240430
